FAERS Safety Report 19222684 (Version 1)
Quarter: 2021Q2

REPORT INFORMATION
  Report Type: Spontaneous
  Country: IN (occurrence: IN)
  Receive Date: 20210506
  Receipt Date: 20210506
  Transmission Date: 20210717
  Serious: Yes (Hospitalization)
  Sender: FDA-Public Use
  Company Number: IN-MYLANLABS-2021M1026677

PATIENT
  Age: 30 Year
  Sex: Male

DRUGS (6)
  1. METOCLOPRAMIDE. [Interacting]
     Active Substance: METOCLOPRAMIDE
     Indication: HEADACHE
     Dosage: TAKEN DURING THE PRECEDING 7 DAYS
     Route: 065
  2. ONDANSETRON [Interacting]
     Active Substance: ONDANSETRON
     Indication: INSOMNIA
  3. TRAMADOL. [Interacting]
     Active Substance: TRAMADOL
     Indication: INSOMNIA
  4. ONDANSETRON [Suspect]
     Active Substance: ONDANSETRON
     Indication: HEADACHE
     Dosage: TAKEN DURING THE PRECEDING 7 DAYS
     Route: 065
  5. TRAMADOL. [Interacting]
     Active Substance: TRAMADOL
     Indication: HEADACHE
     Dosage: TAKEN DURING THE PRECEDING 7 DAYS
     Route: 065
  6. METOCLOPRAMIDE. [Interacting]
     Active Substance: METOCLOPRAMIDE
     Indication: INSOMNIA

REACTIONS (7)
  - Potentiating drug interaction [Recovered/Resolved]
  - Acute kidney injury [Recovered/Resolved]
  - Myoglobinuria [Recovered/Resolved]
  - Serotonin syndrome [Recovered/Resolved]
  - Off label use [Unknown]
  - Loss of consciousness [Recovered/Resolved]
  - Rhabdomyolysis [Recovered/Resolved]
